FAERS Safety Report 17024307 (Version 6)
Quarter: 2020Q2

REPORT INFORMATION
  Report Type: Report from Study
  Country: US (occurrence: US)
  Receive Date: 20191113
  Receipt Date: 20200403
  Transmission Date: 20200713
  Serious: No
  Sender: FDA-Public Use
  Company Number: NVSC2019US033714

PATIENT
  Age: 74 Year
  Sex: Female

DRUGS (4)
  1. BEOVU [Suspect]
     Active Substance: BROLUCIZUMAB-DBLL
     Dosage: 1 DF (ONE SINGLE DOSE VIAL) (BATCH NUMBER WAS UNKNOWN)
     Route: 047
     Dates: start: 20191106
  2. BEOVU [Suspect]
     Active Substance: BROLUCIZUMAB-DBLL
     Indication: NEOVASCULAR AGE-RELATED MACULAR DEGENERATION
     Dosage: UNK
     Route: 047
     Dates: start: 20191023
  3. BEOVU [Suspect]
     Active Substance: BROLUCIZUMAB-DBLL
     Dosage: 1 DF (ONE SINGLE DOSE VIAL) (BATCH NUMBER WAS UNKNOWN)
     Route: 047
     Dates: start: 20191119
  4. BEOVU [Suspect]
     Active Substance: BROLUCIZUMAB-DBLL
     Route: 065
     Dates: start: 20191022

REACTIONS (6)
  - Eye swelling [Recovered/Resolved]
  - Eye swelling [Unknown]
  - Ocular hyperaemia [Recovered/Resolved]
  - Injection site erythema [Recovered/Resolved]
  - Vitreous floaters [Recovering/Resolving]
  - Pre-existing condition improved [Unknown]

NARRATIVE: CASE EVENT DATE: 20191106
